FAERS Safety Report 7337215-9 (Version None)
Quarter: 2011Q1

REPORT INFORMATION
  Report Type: 
  Country: None (occurrence: None)
  Receive Date: 20110308
  Receipt Date: 20110303
  Transmission Date: 20110831
  Serious: No
  Sender: FDA-Public Use
  Company Number: US-PFIZER INC-2011018998

PATIENT
  Sex: Female

DRUGS (6)
  1. LIPITOR [Suspect]
     Indication: BLOOD CHOLESTEROL INCREASED
     Dosage: 40 MG, DAILY
     Route: 048
  2. LOSARTAN POTASSIUM AND HYDROCHLOROTHIAZIDE [Concomitant]
     Dosage: 50/12.5 MG
  3. METOPROLOL [Concomitant]
     Dosage: UNK, 2X/DAY
  4. ACETAMINOPHEN [Concomitant]
     Dosage: UNK
  5. LIPITOR [Suspect]
     Indication: HYPERTENSION
     Dosage: 20 MG, 2X/DAY
  6. PENICILLIN [Suspect]

REACTIONS (2)
  - SINUSITIS [None]
  - FOREIGN BODY [None]
